FAERS Safety Report 5098756-0 (Version None)
Quarter: 2006Q3

REPORT INFORMATION
  Report Type: 
  Country: None (occurrence: None)
  Receive Date: 20060907
  Receipt Date: 20060828
  Transmission Date: 20061208
  Serious: Yes (Hospitalization)
  Sender: FDA-Public Use
  Company Number: FR-GLAXOSMITHKLINE-B0436180A

PATIENT
  Age: 85 Year
  Sex: Female

DRUGS (11)
  1. DEROXAT [Suspect]
     Route: 048
     Dates: end: 20060718
  2. FLUDEX [Suspect]
     Route: 048
     Dates: end: 20060718
  3. ALDALIX [Suspect]
     Route: 048
     Dates: end: 20060718
  4. ALLOPURINOL [Concomitant]
  5. MODOPAR [Concomitant]
     Route: 048
  6. IMOVANE [Concomitant]
     Route: 048
  7. AMARYL [Concomitant]
     Route: 048
  8. PROPOFOL [Concomitant]
  9. ESBERIVEN [Concomitant]
  10. TRIVASTAL [Concomitant]
  11. TARDYFERON [Concomitant]

REACTIONS (5)
  - ASTHENIA [None]
  - GENERAL PHYSICAL HEALTH DETERIORATION [None]
  - HYPERKALAEMIA [None]
  - HYPONATRAEMIA [None]
  - VOMITING [None]
